FAERS Safety Report 6641911-6 (Version None)
Quarter: 2010Q1

REPORT INFORMATION
  Report Type: 
  Country: None (occurrence: None)
  Receive Date: 20100319
  Receipt Date: 20100306
  Transmission Date: 20100710
  Serious: Yes (Hospitalization)
  Sender: FDA-Public Use
  Company Number: PHHY2010GB14522

PATIENT
  Sex: Male

DRUGS (4)
  1. CLOZARIL [Suspect]
     Indication: SCHIZOPHRENIA
     Dosage: UNK
     Dates: start: 20100105
  2. AMFETAMINE [Suspect]
  3. COCAINE [Suspect]
  4. OPIOIDS [Suspect]

REACTIONS (2)
  - DRUG DOSE OMISSION [None]
  - OVERDOSE [None]
